FAERS Safety Report 16895363 (Version 1)
Quarter: 2019Q4

REPORT INFORMATION
  Report Type: Spontaneous
  Country: US (occurrence: US)
  Receive Date: 20191008
  Receipt Date: 20191008
  Transmission Date: 20200122
  Serious: Yes (Hospitalization)
  Sender: FDA-Public Use
  Company Number: US-VIFOR (INTERNATIONAL) INC.-VIT-2019-09678

PATIENT
  Age: 78 Year
  Sex: Male

DRUGS (21)
  1. VELTASSA [Suspect]
     Active Substance: PATIROMER
     Indication: HYPERKALAEMIA
     Route: 048
     Dates: start: 20170128, end: 201909
  2. PROSTATE [Concomitant]
     Active Substance: DIETARY SUPPLEMENT
  3. LOKELMA [Concomitant]
     Active Substance: SODIUM ZIRCONIUM CYCLOSILICATE
     Dates: start: 201909
  4. SPIRONOLACTONE. [Concomitant]
     Active Substance: SPIRONOLACTONE
  5. SPIRIVA [Concomitant]
     Active Substance: TIOTROPIUM BROMIDE MONOHYDRATE
  6. PRAVASTATIN. [Concomitant]
     Active Substance: PRAVASTATIN
  7. LORAZEPAM. [Concomitant]
     Active Substance: LORAZEPAM
  8. FISH OIL [Concomitant]
     Active Substance: FISH OIL
  9. WARFARIN [Concomitant]
     Active Substance: WARFARIN
  10. HYDRALAZINE [Concomitant]
     Active Substance: HYDRALAZINE HYDROCHLORIDE
  11. GLIPIZIDE. [Concomitant]
     Active Substance: GLIPIZIDE
  12. TORSEMIDE. [Concomitant]
     Active Substance: TORSEMIDE
  13. LEVOTHYROXIN [Concomitant]
     Active Substance: LEVOTHYROXINE
  14. TAMSULOSIN [Concomitant]
     Active Substance: TAMSULOSIN
  15. MELATONIN [Concomitant]
     Active Substance: MELATONIN
  16. CARVEDILOL. [Concomitant]
     Active Substance: CARVEDILOL
  17. VITAMIN D [Concomitant]
     Active Substance: VITAMIN D NOS
  18. LANTUX [Concomitant]
  19. ISOSORB [Concomitant]
  20. FERREX [Concomitant]
     Active Substance: FERRIC POLYSACCHARIDE COMPLEX
  21. ASPIRIN. [Concomitant]
     Active Substance: ASPIRIN

REACTIONS (1)
  - Hospitalisation [Unknown]

NARRATIVE: CASE EVENT DATE: 201909
